FAERS Safety Report 22234862 (Version 2)
Quarter: 2023Q2

REPORT INFORMATION
  Report Type: Report from Study
  Country: US (occurrence: US)
  Receive Date: 20230420
  Receipt Date: 20230504
  Transmission Date: 20230721
  Serious: Yes (Other)
  Sender: FDA-Public Use
  Company Number: US-TEVA-2023-US-2877017

PATIENT
  Sex: Female

DRUGS (7)
  1. NALTREXONE [Suspect]
     Active Substance: NALTREXONE
     Indication: Mast cell activation syndrome
     Route: 065
  2. MONTELUKAST [Suspect]
     Active Substance: MONTELUKAST SODIUM
     Indication: Mast cell activation syndrome
     Route: 065
  3. HYDROXYUREA [Suspect]
     Active Substance: HYDROXYUREA
     Indication: Mast cell activation syndrome
     Dosage: 600 MILLIGRAM DAILY; ONCE A DAY
     Route: 048
  4. KETOTIFEN [Suspect]
     Active Substance: KETOTIFEN
     Indication: Mast cell activation syndrome
     Route: 048
  5. QUERCETIN [Suspect]
     Active Substance: QUERCETIN
     Indication: Mast cell activation syndrome
     Route: 065
  6. VITAMIN C [Suspect]
     Active Substance: ASCORBIC ACID
     Indication: Mast cell activation syndrome
     Route: 065
  7. VITAMIN D NOS [Suspect]
     Active Substance: VITAMIN D NOS
     Indication: Mast cell activation syndrome
     Route: 065

REACTIONS (3)
  - Drug ineffective for unapproved indication [Unknown]
  - Hepatotoxicity [Recovered/Resolved]
  - Off label use [Unknown]
